FAERS Safety Report 25016194 (Version 2)
Quarter: 2025Q2

REPORT INFORMATION
  Report Type: Spontaneous
  Country: US (occurrence: US)
  Receive Date: 20250227
  Receipt Date: 20250401
  Transmission Date: 20250717
  Serious: No
  Sender: ROCHE
  Company Number: US-ROCHE-10000212917

PATIENT
  Sex: Female

DRUGS (22)
  1. XOLAIR [Suspect]
     Active Substance: OMALIZUMAB
     Indication: Idiopathic urticaria
     Dosage: STRENGTH: 300MG/2ML?LAST DOSE GIVEN ON 13-MAR-2025
     Route: 058
     Dates: start: 20250213
  2. XOLAIR [Suspect]
     Active Substance: OMALIZUMAB
     Indication: Asthma
  3. ABILIFY ASIM PRS 960MG/3 [Concomitant]
  4. ACETAMINOPHE TAB 300-60MG [Concomitant]
  5. AMLODIPINE + TAB 10MG [Concomitant]
  6. ASPIRIN CHE 81MG [Concomitant]
  7. ATORVASTATIN TAB 80MG [Concomitant]
  8. BRILINTA TAB 90MG [Concomitant]
  9. CARVEDILOL TAB 25MG [Concomitant]
  10. CETIRIZINE ? TAB 10MG [Concomitant]
  11. DICYCLOMINE TAB 20MG [Concomitant]
  12. FLONASE ALLE SUS 50MCG/AC [Concomitant]
  13. FUROSEMIDE TAB 80MG [Concomitant]
  14. GABAPENTIN TAB 800MG [Concomitant]
  15. ISOSORBIDE D TAB 40MG [Concomitant]
  16. MONTELUKAST SODIUM [Concomitant]
     Active Substance: MONTELUKAST SODIUM
  17. OMEPRAZOLE CPD 40MG [Concomitant]
  18. POTASSIUM CH PAC 20MEQ [Concomitant]
  19. RANOLAZINE E TB1 1000MG [Concomitant]
  20. TRELEGY ELLI AEP 100-62.5 [Concomitant]
  21. TRIAMCINOLON CRE 0.1% [Concomitant]
  22. VITAMIN B12 [Concomitant]
     Active Substance: CYANOCOBALAMIN

REACTIONS (1)
  - Depression [Not Recovered/Not Resolved]
